FAERS Safety Report 7438965-6 (Version None)
Quarter: 2011Q2

REPORT INFORMATION
  Report Type: 
  Country: None (occurrence: None)
  Receive Date: 20110426
  Receipt Date: 20110413
  Transmission Date: 20111010
  Serious: Yes (Hospitalization)
  Sender: FDA-Public Use
  Company Number: GB-MYLANLABS-2011S1007679

PATIENT
  Age: 23 Year
  Sex: Male

DRUGS (5)
  1. DIAZEPAM [Concomitant]
     Indication: PAIN
     Route: 048
  2. TRAMADOL [Concomitant]
     Indication: PAIN
     Route: 048
  3. GABAPENTIN [Suspect]
     Indication: PAIN
     Route: 048
     Dates: start: 20110228, end: 20110315
  4. ACETAMINOPHEN [Concomitant]
     Indication: PAIN
     Route: 048
  5. TEMAZEPAM [Concomitant]
     Indication: PAIN
     Route: 048

REACTIONS (4)
  - VISION BLURRED [None]
  - CEREBELLAR ATAXIA [None]
  - HEADACHE [None]
  - DYSARTHRIA [None]
